FAERS Safety Report 24563656 (Version 1)
Quarter: 2024Q4

REPORT INFORMATION
  Report Type: Spontaneous
  Country: US (occurrence: US)
  Receive Date: 20241030
  Receipt Date: 20241030
  Transmission Date: 20250115
  Serious: No
  Sender: CHATTEM
  Company Number: US-OPELLA-2024OHG036073

PATIENT
  Age: 35 Year
  Sex: Male

DRUGS (5)
  1. LEVOCETIRIZINE [Suspect]
     Active Substance: LEVOCETIRIZINE
     Indication: Rash
  2. PREDNISONE [Concomitant]
     Active Substance: PREDNISONE
     Indication: Rash
  3. CYCLOSPORINE [Concomitant]
     Active Substance: CYCLOSPORINE
     Indication: Rash
  4. TACROLIMUS [Concomitant]
     Active Substance: TACROLIMUS
     Indication: Rash
     Route: 061
  5. DUPILUMAB [Concomitant]
     Active Substance: DUPILUMAB
     Indication: Rash

REACTIONS (2)
  - Off label use [Unknown]
  - No adverse event [Unknown]
